FAERS Safety Report 5465517-X (Version None)
Quarter: 2007Q3

REPORT INFORMATION
  Report Type: 
  Country: None (occurrence: None)
  Receive Date: 20070924
  Receipt Date: 20070831
  Transmission Date: 20080115
  Serious: Yes (Other)
  Sender: FDA-Public Use
  Company Number: PHEH2007US12508

PATIENT
  Sex: Male

DRUGS (6)
  1. AVASTIN [Suspect]
     Indication: COLON CANCER
  2. NORVASC [Suspect]
  3. ACCUPRIL [Suspect]
  4. TOPROL-XL [Suspect]
  5. LIPITOR [Suspect]
  6. HYDROCHLOROTHIAZIDE [Suspect]
     Indication: HYPERTENSION

REACTIONS (2)
  - BLOOD PRESSURE ABNORMAL [None]
  - COLON CANCER [None]
